FAERS Safety Report 9301745 (Version 2)
Quarter: 2013Q2

REPORT INFORMATION
  Report Type: Spontaneous
  Country: US (occurrence: US)
  Receive Date: 20130521
  Receipt Date: 20130610
  Transmission Date: 20140414
  Serious: Yes (Other)
  Sender: FDA-Public Use
  Company Number: US-WATSON-2013-08397

PATIENT
  Age: 46 Year
  Sex: Male
  Weight: 125 kg

DRUGS (1)
  1. PENTAZOCINE + NALOXONE (WATSON LABORATORIES) [Suspect]
     Indication: BACK PAIN
     Dosage: ^50/0.5, ONE 4X DAILY AS NEEDED^
     Route: 048
     Dates: start: 20130114, end: 20130116

REACTIONS (8)
  - Dysphagia [Recovered/Resolved]
  - Facial paresis [Recovering/Resolving]
  - Eyelid ptosis [Recovering/Resolving]
  - Hypoaesthesia oral [Recovering/Resolving]
  - Facial pain [Recovering/Resolving]
  - Lagophthalmos [Recovering/Resolving]
  - Eye disorder [Not Recovered/Not Resolved]
  - VIIth nerve paralysis [Not Recovered/Not Resolved]
